FAERS Safety Report 8620824-4 (Version None)
Quarter: 2012Q3

REPORT INFORMATION
  Report Type: 
  Country: None (occurrence: None)
  Receive Date: 20120816
  Receipt Date: 20120816
  Transmission Date: 20120928
  Serious: Yes (Other)
  Sender: FDA-Public Use
  Company Number: None

PATIENT
  Age: 52 Year
  Sex: Female
  Weight: 73.9363 kg

DRUGS (1)
  1. CELEBREX [Suspect]
     Indication: INFLAMMATION
     Dosage: ONE CAPSULE ONE PER DAY  PO
     Route: 048

REACTIONS (10)
  - INFLUENZA LIKE ILLNESS [None]
  - NAUSEA [None]
  - FEELING ABNORMAL [None]
  - CHILLS [None]
  - DECREASED APPETITE [None]
  - ABDOMINAL DISCOMFORT [None]
  - WHITE BLOOD CELL COUNT DECREASED [None]
  - DIARRHOEA [None]
  - ASTHENIA [None]
  - RED BLOOD CELL COUNT DECREASED [None]
